FAERS Safety Report 19126847 (Version 1)
Quarter: 2021Q2

REPORT INFORMATION
  Report Type: Other
  Country: US (occurrence: US)
  Receive Date: 20210413
  Receipt Date: 20210413
  Transmission Date: 20210717
  Serious: Yes (Other)
  Sender: FDA-Public Use
  Company Number: US-DEXPHARM-20210468

PATIENT
  Age: 46 Year
  Sex: Male

DRUGS (22)
  1. EPIDIOLEX [Interacting]
     Active Substance: CANNABIDIOL
     Dosage: INITIAL DOSAGE OF 5 MG/KG/DAY, TO BE TITRATED WEEKLY TO A FINAL DAILY DOSE OF 20 MG/KG
     Route: 048
  2. LACOSAMIDE. [Concomitant]
     Active Substance: LACOSAMIDE
     Route: 048
  3. METHOTREXATE. [Concomitant]
     Active Substance: METHOTREXATE
  4. MONTELUKAST [Concomitant]
     Active Substance: MONTELUKAST SODIUM
     Dosage: 10 MG NIGHTLY
  5. OMEPRAZOLE. [Interacting]
     Active Substance: OMEPRAZOLE
  6. CARVEDILOL. [Concomitant]
     Active Substance: CARVEDILOL
  7. WARFARIN [Suspect]
     Active Substance: WARFARIN
     Dates: start: 201604
  8. KETOCONAZOLE. [Concomitant]
     Active Substance: KETOCONAZOLE
     Dosage: APPLIED TO FEET TWICE DAILY
     Route: 061
  9. TRAMADOL. [Concomitant]
     Active Substance: TRAMADOL
     Dosage: 50 MG EVERY 6 HOURS AS NEEDED
  10. ATORVASTATIN [Concomitant]
     Active Substance: ATORVASTATIN
     Dosage: 40 MG NIGHTLY
  11. CETIRIZINE [Concomitant]
     Active Substance: CETIRIZINE HYDROCHLORIDE
  12. MYCOPHENOLIC ACID. [Concomitant]
     Active Substance: MYCOPHENOLIC ACID
  13. PREDNISONE. [Concomitant]
     Active Substance: PREDNISONE
  14. AZELASTINE. [Concomitant]
     Active Substance: AZELASTINE HYDROCHLORIDE
     Dosage: 2 SPRAYS IN BOTH NARES
     Route: 045
  15. FOLIC ACID. [Concomitant]
     Active Substance: FOLIC ACID
  16. LEVETIRACETAM. [Concomitant]
     Active Substance: LEVETIRACETAM
     Route: 048
  17. RANITIDINE. [Concomitant]
     Active Substance: RANITIDINE
  18. CARBAMAZEPINE. [Suspect]
     Active Substance: CARBAMAZEPINE
     Dosage: 600 MG ORALLY DAILY
     Route: 048
  19. CARBAMAZEPINE. [Suspect]
     Active Substance: CARBAMAZEPINE
     Dosage: 900 MG ORALLY NIGHTLY
     Route: 048
  20. PARACETAMOL [Concomitant]
     Active Substance: ACETAMINOPHEN
     Dosage: 1,000 MG TWICE DAILY AS NEEDED
  21. FLUTICASONE. [Concomitant]
     Active Substance: FLUTICASONE
     Dosage: 1 SPRAY IN EACH NARES
     Route: 045
  22. MUPIROCIN. [Concomitant]
     Active Substance: MUPIROCIN
     Route: 061

REACTIONS (1)
  - Drug interaction [Unknown]
